FAERS Safety Report 6138726-4 (Version None)
Quarter: 2009Q1

REPORT INFORMATION
  Report Type: 
  Country: None (occurrence: None)
  Receive Date: 20090331
  Receipt Date: 20090324
  Transmission Date: 20090719
  Serious: Yes (Other)
  Sender: FDA-Public Use
  Company Number: IL-JNJFOC-20090306401

PATIENT
  Age: 24 Year
  Sex: Female

DRUGS (2)
  1. INVEGA [Suspect]
     Indication: SCHIZOPHRENIA
     Route: 048
  2. HALDOL [Suspect]
     Indication: SCHIZOPHRENIA

REACTIONS (1)
  - BLOOD PROLACTIN INCREASED [None]
